FAERS Safety Report 8999085 (Version 1)
Quarter: 2013Q1

REPORT INFORMATION
  Report Type: Spontaneous
  Country: US (occurrence: US)
  Receive Date: 20130103
  Receipt Date: 20130103
  Transmission Date: 20140127
  Serious: No
  Sender: FDA-Public Use
  Company Number: US-VERTEX PHARMACEUTICALS INC.-2013-000078

PATIENT
  Sex: Male
  Weight: 89 kg

DRUGS (4)
  1. INCIVEK [Suspect]
     Indication: HEPATITIS C
     Dosage: 750 MG, TID
     Route: 048
     Dates: start: 20121228
  2. COPEGUS [Suspect]
     Indication: HEPATITIS C
     Dosage: 600 MG,BID
     Route: 048
     Dates: start: 20121228
  3. PEGASYS [Suspect]
     Indication: HEPATITIS C
     Dosage: 180 ?G, QW
     Route: 058
     Dates: start: 20121228
  4. HYDROCODONE [Concomitant]
     Indication: BACK PAIN

REACTIONS (1)
  - Rash generalised [Not Recovered/Not Resolved]
